FAERS Safety Report 18088692 (Version 3)
Quarter: 2021Q1

REPORT INFORMATION
  Report Type: Spontaneous
  Country: US (occurrence: US)
  Receive Date: 20200729
  Receipt Date: 20210125
  Transmission Date: 20210419
  Serious: Yes (Other)
  Sender: FDA-Public Use
  Company Number: US-PFIZER INC-2020288198

PATIENT
  Age: 67 Year
  Sex: Female

DRUGS (59)
  1. HERCEPTIN [Concomitant]
     Active Substance: TRASTUZUMAB
     Dosage: UNK (550)
     Dates: start: 20120604
  2. HERCEPTIN [Concomitant]
     Active Substance: TRASTUZUMAB
     Dosage: 485 MG
     Dates: start: 20120917
  3. ACCOLATE [Concomitant]
     Active Substance: ZAFIRLUKAST
     Indication: ASTHMA
     Dosage: 20 MG (1 IN AM AND PM)
  4. MOBIC [Concomitant]
     Active Substance: MELOXICAM
     Indication: ARTHRITIS
     Dosage: 7.5 MG
  5. VITAMIN D [Concomitant]
     Active Substance: VITAMIN D NOS
     Dosage: 800 IU (1 IN AM + PM)
  6. DOCETAXEL. [Suspect]
     Active Substance: DOCETAXEL
     Indication: BREAST CANCER STAGE I
     Dosage: UNK
  7. HERCEPTIN [Concomitant]
     Active Substance: TRASTUZUMAB
     Dosage: UNK
     Dates: start: 2012
  8. HERCEPTIN [Concomitant]
     Active Substance: TRASTUZUMAB
     Dosage: UNK (550)
     Dates: start: 20120507
  9. HERCEPTIN [Concomitant]
     Active Substance: TRASTUZUMAB
     Dosage: UNK (550)
     Dates: start: 20120806
  10. HERCEPTIN [Concomitant]
     Active Substance: TRASTUZUMAB
     Dosage: 485 MG
     Dates: start: 20130102
  11. ARIMIDEX [Concomitant]
     Active Substance: ANASTROZOLE
     Dosage: UNK
     Dates: start: 20121210
  12. CARBOPLATIN. [Concomitant]
     Active Substance: CARBOPLATIN
     Dosage: UNK (520)
     Dates: start: 20120507
  13. GLUCOPHAGE XR [Concomitant]
     Active Substance: METFORMIN HYDROCHLORIDE
     Indication: BLOOD GLUCOSE ABNORMAL
     Dosage: 500 MG (1 IN AM AND PM)
  14. NEURONTIN [Concomitant]
     Active Substance: GABAPENTIN
     Indication: DIABETES MELLITUS
  15. VITAMIN A [Concomitant]
     Active Substance: VITAMIN A
     Dosage: 8000 IU (1 IN PM)
  16. TAXOTERE [Suspect]
     Active Substance: DOCETAXEL
     Dosage: UNK (145)
     Dates: start: 20120210
  17. FLUOROURACIL. [Concomitant]
     Active Substance: FLUOROURACIL
     Indication: CHEMOTHERAPY
     Dosage: UNK (SIX TIMES)
  18. HERCEPTIN [Concomitant]
     Active Substance: TRASTUZUMAB
     Dosage: UNK (550)
     Dates: start: 20120323
  19. ASPIRIN. [Concomitant]
     Active Substance: ASPIRIN
     Dosage: 81 MG, DAILY (1 IN PM)
     Route: 048
  20. ALLEGRA [Concomitant]
     Active Substance: FEXOFENADINE HYDROCHLORIDE
     Indication: MULTIPLE ALLERGIES
     Dosage: UNK, DAILY (1 IN AM)
  21. DRISDOL [Concomitant]
     Active Substance: ERGOCALCIFEROL
     Dosage: 50000 IU, WEEKLY (1 IN WEEKLY IN AM ON MON)
  22. CALCIUM [Concomitant]
     Active Substance: CALCIUM
     Dosage: 600 MG (1 IN AM + PM)
  23. TAXOTERE [Suspect]
     Active Substance: DOCETAXEL
     Indication: BREAST CANCER STAGE I
     Dosage: UNK (145)
     Dates: start: 20120120
  24. HERCEPTIN [Concomitant]
     Active Substance: TRASTUZUMAB
     Dosage: UNK (550)
     Dates: start: 20120302
  25. HERCEPTIN [Concomitant]
     Active Substance: TRASTUZUMAB
     Dosage: 485 MG
     Dates: start: 20121119
  26. CARBOPLATIN. [Concomitant]
     Active Substance: CARBOPLATIN
     Dosage: UNK (520)
     Dates: start: 20120413
  27. METFORMIN [Concomitant]
     Active Substance: METFORMIN HYDROCHLORIDE
     Dosage: UNK, DAILY
  28. TAMOXIFEN [Concomitant]
     Active Substance: TAMOXIFEN
     Dosage: UNK (5 YEARS)
  29. LIPITOR [Concomitant]
     Active Substance: ATORVASTATIN CALCIUM
     Indication: BLOOD CHOLESTEROL ABNORMAL
     Dosage: 20 MG (1 IN PM)
  30. TAXOTERE [Suspect]
     Active Substance: DOCETAXEL
     Dosage: UNK (145)
     Dates: start: 20120413
  31. CYCLOPHOSPHAMIDE. [Concomitant]
     Active Substance: CYCLOPHOSPHAMIDE
     Indication: CHEMOTHERAPY
     Dosage: UNK (SIX TIMES)
  32. HERCEPTIN [Concomitant]
     Active Substance: TRASTUZUMAB
     Indication: CHEMOTHERAPY
     Dosage: UNK, CYCLIC (06 CYCLES, EVERY THREE WEEKS)
  33. HERCEPTIN [Concomitant]
     Active Substance: TRASTUZUMAB
     Dosage: UNK (550)
     Dates: start: 20120210
  34. HERCEPTIN [Concomitant]
     Active Substance: TRASTUZUMAB
     Dosage: UNK (485)
     Dates: start: 20120827
  35. HERCEPTIN [Concomitant]
     Active Substance: TRASTUZUMAB
     Dosage: 485 MG
     Dates: start: 20121008
  36. HERCEPTIN [Concomitant]
     Active Substance: TRASTUZUMAB
     Dosage: 485 MG
     Dates: start: 20121029
  37. HERCEPTIN [Concomitant]
     Active Substance: TRASTUZUMAB
     Dosage: 485 MG
     Dates: start: 20121210
  38. CARBOPLATIN. [Concomitant]
     Active Substance: CARBOPLATIN
     Dosage: UNK (520)
     Dates: start: 20120210
  39. CARBOPLATIN. [Concomitant]
     Active Substance: CARBOPLATIN
     Dosage: UNK (520)
     Dates: start: 20120302
  40. CARBOPLATIN. [Concomitant]
     Active Substance: CARBOPLATIN
     Dosage: UNK (520)
     Dates: start: 20120323
  41. HERCEPTIN [Concomitant]
     Active Substance: TRASTUZUMAB
     Dosage: UNK (550)
     Dates: start: 20120120
  42. HERCEPTIN [Concomitant]
     Active Substance: TRASTUZUMAB
     Dosage: UNK (550)
     Dates: start: 20120413
  43. HERCEPTIN [Concomitant]
     Active Substance: TRASTUZUMAB
     Dosage: 550 MG
     Dates: start: 20120625
  44. HERCEPTIN [Concomitant]
     Active Substance: TRASTUZUMAB
     Dosage: 550 MG
     Dates: start: 20120716
  45. HYZAAR [Concomitant]
     Active Substance: HYDROCHLOROTHIAZIDE\LOSARTAN POTASSIUM
     Indication: BLOOD PRESSURE ABNORMAL
     Dosage: 100/12.5 MG (1 IN AM)
  46. TAXOTERE [Suspect]
     Active Substance: DOCETAXEL
     Dosage: UNK (145)
     Dates: start: 20120302
  47. TAXOTERE [Suspect]
     Active Substance: DOCETAXEL
     Dosage: UNK (145)
     Dates: start: 20120323
  48. METHOTREXATE. [Concomitant]
     Active Substance: METHOTREXATE
     Indication: CHEMOTHERAPY
     Dosage: UNK (SIX TIMES)
  49. ARIMIDEX [Concomitant]
     Active Substance: ANASTROZOLE
     Indication: CHEMOTHERAPY
     Dosage: UNK
     Dates: start: 20120806
  50. NEURONTIN [Concomitant]
     Active Substance: GABAPENTIN
     Indication: NEUROPATHY PERIPHERAL
     Dosage: 300 MG (1 IN AM + 2 IN PM)
  51. VITAMIN C [Concomitant]
     Active Substance: ASCORBIC ACID
     Dosage: 500 MG
  52. TAXOTERE [Suspect]
     Active Substance: DOCETAXEL
     Dosage: UNK (145)
     Dates: start: 20120507
  53. ARIMIDEX [Concomitant]
     Active Substance: ANASTROZOLE
     Dosage: UNK
     Dates: start: 20121008
  54. ARIMIDEX [Concomitant]
     Active Substance: ANASTROZOLE
     Dosage: UNK
     Dates: start: 20121119
  55. CARBOPLATIN. [Concomitant]
     Active Substance: CARBOPLATIN
     Indication: CHEMOTHERAPY
     Dosage: UNK (520)
     Dates: start: 20120120
  56. ADVAIR HFA [Concomitant]
     Active Substance: FLUTICASONE PROPIONATE\SALMETEROL XINAFOATE
     Dosage: UNK, DAILY
  57. EFFEXOR [Concomitant]
     Active Substance: VENLAFAXINE HYDROCHLORIDE
     Indication: DEPRESSION
     Dosage: UNK, DAILY
  58. EFFEXOR [Concomitant]
     Active Substance: VENLAFAXINE HYDROCHLORIDE
     Dosage: 75 MG (1 IN PM)
  59. NORVASC [Concomitant]
     Active Substance: AMLODIPINE BESYLATE
     Indication: BLOOD PRESSURE ABNORMAL
     Dosage: 2.5 MG (1 IN AM)

REACTIONS (4)
  - Lacrimation increased [Unknown]
  - Dry eye [Unknown]
  - Eye irritation [Unknown]
  - Dacryostenosis acquired [Unknown]
